FAERS Safety Report 11866731 (Version 1)
Quarter: 2015Q4

REPORT INFORMATION
  Report Type: Report from Study
  Country: ID (occurrence: ID)
  Receive Date: 20151224
  Receipt Date: 20151224
  Transmission Date: 20160305
  Serious: Yes (Hospitalization, Other)
  Sender: FDA-Public Use
  Company Number: ID-ROCHE-1455218

PATIENT
  Age: 81 Year
  Sex: Male

DRUGS (1)
  1. MABTHERA [Suspect]
     Active Substance: RITUXIMAB
     Indication: DIFFUSE LARGE B-CELL LYMPHOMA
     Route: 065
     Dates: start: 20140822, end: 20150127

REACTIONS (5)
  - Dyspnoea [Unknown]
  - Chills [Unknown]
  - General physical health deterioration [Unknown]
  - Decreased appetite [Unknown]
  - Pyrexia [Unknown]
